FAERS Safety Report 9508467 (Version 1)
Quarter: 2013Q1

REPORT INFORMATION
  Report Type: Spontaneous
  Country: US (occurrence: None)
  Receive Date: 20130305
  Receipt Date: 20130305
  Transmission Date: 20140127
  Serious: Yes (Other)
  Sender: FDA-Public Use
  Company Number: 163-21880-12112026

PATIENT
  Age: 64 Year
  Sex: Male
  Weight: 112.49 kg

DRUGS (3)
  1. REVLIMID (LENALIDOMIDE) (25 MILLIGRAM, CAPSULES) [Suspect]
     Indication: PLASMA CELL MYELOMA
     Dosage: CAPSULE, 25 MG, 21 IN 28 D, PO
     Dates: start: 20110907
  2. ASPIRIN (ACETYLSALICYLIC ACID) [Concomitant]
  3. PROPRANOLOL [Concomitant]

REACTIONS (4)
  - Drug dose omission [None]
  - Anxiety [None]
  - Insomnia [None]
  - Headache [None]
